FAERS Safety Report 16338674 (Version 2)
Quarter: 2019Q2

REPORT INFORMATION
  Report Type: Report from Study
  Country: US (occurrence: US)
  Receive Date: 20190521
  Receipt Date: 20190617
  Transmission Date: 20190711
  Serious: Yes (Hospitalization, Other)
  Sender: FDA-Public Use
  Company Number: US-GILEAD-2019-0408968

PATIENT
  Age: 29 Year
  Sex: Female

DRUGS (16)
  1. NASACORT [Concomitant]
     Active Substance: TRIAMCINOLONE ACETONIDE
  2. TRIAMCINOLONE [Concomitant]
     Active Substance: TRIAMCINOLONE
  3. PHYTONADIONE. [Concomitant]
     Active Substance: PHYTONADIONE
  4. AZTREONAM LYSINE [Suspect]
     Active Substance: AZTREONAM LYSINE
     Indication: CYSTIC FIBROSIS
     Dosage: 75 MG, TID
     Dates: start: 20130516
  5. ORKAMBI [Concomitant]
     Active Substance: IVACAFTOR\LUMACAFTOR
  6. TOBRAMYCIN. [Concomitant]
     Active Substance: TOBRAMYCIN
  7. ALL DAY PAIN RELIEF [Concomitant]
     Active Substance: NAPROXEN SODIUM
  8. WIXELA [Concomitant]
  9. ZENPEP [Concomitant]
     Active Substance: PANCRELIPASE AMYLASE\PANCRELIPASE LIPASE\PANCRELIPASE PROTEASE
  10. ALBUTEROL [SALBUTAMOL] [Concomitant]
     Active Substance: ALBUTEROL
  11. OMEPRAZOLE. [Concomitant]
     Active Substance: OMEPRAZOLE
  12. BUDESONIDE. [Concomitant]
     Active Substance: BUDESONIDE
  13. FEXOFENADINE [Concomitant]
     Active Substance: FEXOFENADINE\FEXOFENADINE HYDROCHLORIDE
  14. IPRATROPIUM [Concomitant]
     Active Substance: IPRATROPIUM
  15. SODIUM CHLORIDE. [Concomitant]
     Active Substance: SODIUM CHLORIDE
  16. MULTIVITAMINUM [Concomitant]

REACTIONS (2)
  - Lung disorder [Unknown]
  - Cystic fibrosis [Unknown]

NARRATIVE: CASE EVENT DATE: 201904
